FAERS Safety Report 8982386 (Version 1)
Quarter: 2012Q4

REPORT INFORMATION
  Report Type: 
  Country: ES (occurrence: ES)
  Receive Date: 20121222
  Receipt Date: 20121222
  Transmission Date: 20130627
  Serious: Yes (Other)
  Sender: FDA-Public Use
  Company Number: ES-B.I. PHARMACEUTICALS,INC./RIDGEFIELD-2012-ES-00501ES

PATIENT
  Age: 64 Year
  Sex: Female

DRUGS (13)
  1. PRADAXA [Suspect]
     Indication: ATRIAL FIBRILLATION
     Dosage: 220 mg
     Route: 048
     Dates: start: 20120925
  2. ACTIQ [Suspect]
     Dosage: 2400 mcg
     Route: 002
     Dates: start: 20120817
  3. AMLODIPINE [Concomitant]
     Indication: HYPERTENSION
     Dosage: 5 mg
     Route: 048
     Dates: start: 20120109
  4. ENALAPRIL [Concomitant]
     Dosage: 20 mg
     Route: 048
     Dates: start: 20120109
  5. RABEPRAZOL [Concomitant]
     Dosage: 20 mg
     Route: 048
     Dates: start: 20120109
  6. ADIRO [Concomitant]
     Dosage: 100 mg
     Route: 048
     Dates: start: 20091202
  7. ALDACTONE [Concomitant]
     Dosage: 25 mg
     Route: 048
     Dates: start: 20110225
  8. DIGOXINA TEOFARMA [Concomitant]
     Indication: CARDIAC FAILURE
     Dosage: 0.25 mg
     Route: 048
     Dates: start: 20120109
  9. EUTIROX [Concomitant]
     Indication: HYPOTHYROIDISM
     Dosage: 25 mcg
     Route: 048
     Dates: start: 20120126
  10. FOLI-DOCE [Concomitant]
     Indication: ANAEMIA FOLATE DEFICIENCY
     Dosage: 1 DF
     Route: 048
     Dates: start: 20120511
  11. LANTUS SOLOSTAR [Concomitant]
     Indication: DIABETES MELLITUS
     Dosage: 100U/mL
     Dates: start: 20100907
  12. NOVORAPID FLEXPEN [Concomitant]
     Indication: DIABETES MELLITUS
     Dosage: 23.01 U
     Dates: start: 20100907
  13. ZARATOR [Concomitant]
     Indication: HYPERCHOLESTEROLAEMIA
     Dosage: 40 mg
     Route: 048
     Dates: start: 20091124

REACTIONS (1)
  - Tooth fracture [Not Recovered/Not Resolved]
